FAERS Safety Report 8373909-4 (Version None)
Quarter: 2012Q2

REPORT INFORMATION
  Report Type: 
  Country: None (occurrence: None)
  Receive Date: 20120521
  Receipt Date: 20120515
  Transmission Date: 20120825
  Serious: Yes (Other)
  Sender: FDA-Public Use
  Company Number: US-PFIZER INC-2012102020

PATIENT
  Sex: Male

DRUGS (1)
  1. BENEFIX [Suspect]
     Indication: FACTOR IX DEFICIENCY
     Dosage: UNK,AS NEEDED
     Route: 042
     Dates: start: 19990601, end: 20120101

REACTIONS (15)
  - SELF INJURIOUS BEHAVIOUR [None]
  - DIZZINESS [None]
  - CONTUSION [None]
  - MIGRAINE WITH AURA [None]
  - SUICIDE ATTEMPT [None]
  - HEADACHE [None]
  - EYE ALLERGY [None]
  - SINUSITIS [None]
  - CEREBRAL CYST [None]
  - PITUITARY CYST [None]
  - EYE PAIN [None]
  - FALL [None]
  - GROIN PAIN [None]
  - ULTRASOUND SCAN ABNORMAL [None]
  - CLAVICLE FRACTURE [None]
